FAERS Safety Report 17985694 (Version 2)
Quarter: 2020Q3

REPORT INFORMATION
  Report Type: Spontaneous
  Country: JP (occurrence: JP)
  Receive Date: 20200706
  Receipt Date: 20200803
  Transmission Date: 20201103
  Serious: Yes (Hospitalization, Other)
  Sender: FDA-Public Use
  Company Number: JP-PFIZER INC-2020258081

PATIENT
  Age: 85 Year
  Sex: Female
  Weight: 50 kg

DRUGS (1)
  1. TOVIAZ [Suspect]
     Active Substance: FESOTERODINE FUMARATE
     Indication: URGE INCONTINENCE
     Dosage: 4 MG, 1X/DAY
     Dates: start: 20191004, end: 20191101

REACTIONS (8)
  - Aspartate aminotransferase increased [Unknown]
  - Heart rate increased [Unknown]
  - Red blood cell count decreased [Recovering/Resolving]
  - Fall [Recovered/Resolved with Sequelae]
  - Body temperature increased [Recovering/Resolving]
  - Upper limb fracture [Recovered/Resolved with Sequelae]
  - C-reactive protein increased [Recovered/Resolved]
  - Prothrombin time prolonged [Recovered/Resolved]

NARRATIVE: CASE EVENT DATE: 20200411
